FAERS Safety Report 6860929-1 (Version None)
Quarter: 2010Q3

REPORT INFORMATION
  Report Type: 
  Country: None (occurrence: None)
  Receive Date: 20100716
  Receipt Date: 20100701
  Transmission Date: 20110219
  Serious: Yes (Hospitalization, Other)
  Sender: FDA-Public Use
  Company Number: 1-23156004

PATIENT
  Age: 57 Year
  Sex: Male
  Weight: 131.7246 kg

DRUGS (22)
  1. SANTYL [Suspect]
     Indication: WOUND
     Dosage: 250 UNITS/G, 2 TIMES A DAY, TOPICAL
     Route: 061
     Dates: start: 20100602, end: 20100614
  2. VANCOMYCIN [Suspect]
     Indication: OSTEOMYELITIS
     Dosage: INTRAVENOUS
     Route: 042
     Dates: start: 20100501, end: 20100607
  3. VANCOMYCIN [Suspect]
     Indication: OSTEOMYELITIS
     Dosage: INTRAVENOUS
     Route: 042
     Dates: start: 20100623, end: 20100627
  4. AMLODIPINE [Concomitant]
  5. METOPROLOL SUCCINATE [Concomitant]
  6. SPIRONOLACTONE [Concomitant]
  7. TAMSULOSIN HCL [Concomitant]
  8. ZINC SULFATE [Concomitant]
  9. AMIODARONE HCL [Concomitant]
  10. FUROSEMIDE [Concomitant]
  11. MULTIVITAMIN WITH MINERALS [Concomitant]
  12. ACETAMINOPHEN [Concomitant]
  13. DIGOXIN [Concomitant]
  14. BISACODYL [Concomitant]
  15. MILK OF MAGNESIA SUSPENSION [Concomitant]
  16. LISINOPRIL [Concomitant]
  17. FERROUS SULFATE [Concomitant]
  18. LEVOTHYROXINE SODIUM [Concomitant]
  19. ASCORBIC ACID [Concomitant]
  20. LEVALBUTEROL HCL [Concomitant]
  21. WARFARIN [Concomitant]
  22. NYSTATIN [Concomitant]

REACTIONS (6)
  - DRY SKIN [None]
  - NEPHRITIS [None]
  - RASH [None]
  - RENAL FAILURE ACUTE [None]
  - SKIN EXFOLIATION [None]
  - SUNBURN [None]
